FAERS Safety Report 6444498-6 (Version None)
Quarter: 2009Q4

REPORT INFORMATION
  Report Type: 
  Country: None (occurrence: None)
  Receive Date: 20091118
  Receipt Date: 20091105
  Transmission Date: 20100525
  Serious: Yes (Hospitalization)
  Sender: FDA-Public Use
  Company Number: FR-PFIZER INC-2009297203

PATIENT
  Age: 68 Year
  Sex: Female
  Weight: 74 kg

DRUGS (16)
  1. TOLTERODINE TARTRATE [Suspect]
     Indication: HYPERTONIC BLADDER
     Dosage: 4 MG, 1X/DAY
     Route: 048
     Dates: start: 20080718, end: 20080726
  2. LORAZEPAM [Suspect]
     Indication: ANXIETY
     Dosage: 2.5 MG, 1X/DAY
     Dates: start: 19790101, end: 20080726
  3. NOCTRAN 10 [Suspect]
     Indication: INSOMNIA
     Dosage: 10 MG, 1X/DAY
     Route: 048
     Dates: start: 19790101, end: 20080726
  4. TAMOXIFEN [Concomitant]
     Indication: BREAST CANCER
     Dosage: 20 MG, 1X/DAY
     Route: 048
  5. IPERTEN [Concomitant]
     Indication: HYPERTENSION
     Dosage: 10 MG, 1X/DAY
     Route: 048
  6. COVERSYL [Concomitant]
     Indication: HYPERTENSION
     Dosage: 4 MG, 1X/DAY
     Route: 048
  7. DAFLON [Concomitant]
     Indication: VEIN DISORDER
     Dosage: 500 MG, 2X/DAY
     Route: 048
  8. CELIPROLOL [Concomitant]
     Indication: HYPERTENSION
     Dosage: 200 MG, 1X/DAY
     Route: 048
  9. COLECALCIFEROL [Concomitant]
     Indication: OSTEOPOROSIS
     Dosage: 1 G, 1X/DAY
     Route: 048
  10. ALENDRONATE SODIUM [Concomitant]
     Indication: OSTEOPOROSIS
     Dosage: 70 MG, WEEKLY
     Route: 048
  11. DI-ANTALVIC [Concomitant]
     Indication: ANALGESIC THERAPY
     Dosage: UNK
     Route: 048
  12. HYPERICUM PERFORATUM [Concomitant]
     Indication: DEPRESSION
     Dosage: 300 MG, 1X/DAY
     Route: 048
  13. TROPHIGIL [Concomitant]
     Dosage: UNK
  14. CYMBALTA [Concomitant]
  15. FIXICAL [Concomitant]
  16. CLORAZEPATE DIPOTASSIUM [Concomitant]
     Indication: INSOMNIA
     Dosage: 1 DF, 1X/DAY
     Route: 048

REACTIONS (1)
  - FALL [None]
